FAERS Safety Report 10778430 (Version 1)
Quarter: 2015Q1

REPORT INFORMATION
  Report Type: Spontaneous
  Country: LB (occurrence: LB)
  Receive Date: 20150209
  Receipt Date: 20150209
  Transmission Date: 20150721
  Serious: Yes (Other)
  Sender: FDA-Public Use
  Company Number: LB-MYLANLABS-2015M1003484

PATIENT

DRUGS (3)
  1. CIPROFLOXACIN. [Suspect]
     Active Substance: CIPROFLOXACIN
     Indication: URINARY TRACT INFECTION
     Dosage: FOR 5 DAYS
     Route: 065
  2. FLUVOXAMINE [Concomitant]
     Active Substance: FLUVOXAMINE
     Indication: HYPERTONIC BLADDER
     Route: 065
  3. NITROFURANTOIN. [Suspect]
     Active Substance: NITROFURANTOIN
     Indication: HYPERTONIC BLADDER
     Dosage: 2 TABLETS/DAY
     Route: 065

REACTIONS (3)
  - Cystitis interstitial [Recovering/Resolving]
  - Depression [Unknown]
  - Pathogen resistance [Unknown]
